FAERS Safety Report 6270841-7 (Version None)
Quarter: 2009Q3

REPORT INFORMATION
  Report Type: 
  Country: None (occurrence: None)
  Receive Date: 20090715
  Receipt Date: 20090709
  Transmission Date: 20100115
  Serious: Yes (Other)
  Sender: FDA-Public Use
  Company Number: A0796292A

PATIENT
  Age: 29 Year
  Sex: Female

DRUGS (1)
  1. ABREVA [Suspect]
     Indication: BLISTER
     Dosage: OPHTHALMIC
     Route: 047
     Dates: start: 20090709

REACTIONS (5)
  - ACCIDENTAL EXPOSURE [None]
  - BLINDNESS TRANSIENT [None]
  - DRUG ADMINISTRATION ERROR [None]
  - EYE DISORDER [None]
  - FEELING ABNORMAL [None]
